FAERS Safety Report 7828575-0 (Version None)
Quarter: 2011Q4

REPORT INFORMATION
  Report Type: 
  Country: None (occurrence: None)
  Receive Date: 20111020
  Receipt Date: 20111020
  Transmission Date: 20120403
  Serious: Yes (Death)
  Sender: FDA-Public Use
  Company Number: None

PATIENT
  Age: 60 Year
  Sex: Female
  Weight: 70.306 kg

DRUGS (1)
  1. FENTANYL [Suspect]
     Indication: PAIN
     Dosage: 50MCG PATCH
     Dates: start: 20080407, end: 20110625

REACTIONS (4)
  - MENTAL IMPAIRMENT [None]
  - ASTHENIA [None]
  - CARDIAC FAILURE [None]
  - APPLICATION SITE RASH [None]
